FAERS Safety Report 19686508 (Version 2)
Quarter: 2021Q4

REPORT INFORMATION
  Report Type: Spontaneous
  Country: IT (occurrence: IT)
  Receive Date: 20210811
  Receipt Date: 20211013
  Transmission Date: 20220303
  Serious: Yes (Other)
  Sender: FDA-Public Use
  Company Number: IT-PFIZER INC-2021146479

PATIENT
  Age: 61 Year

DRUGS (5)
  1. CISPLATIN [Suspect]
     Active Substance: CISPLATIN
     Indication: Squamous cell carcinoma of head and neck
     Dosage: 60 MILLIGRAM/SQ. METER, CYCLE, 60 MG/M2, CYCLIC (ON DAY 1,2,3, REPEATED AFTER 28 DAYS)
  2. METOCLOPRAMIDE [Concomitant]
     Active Substance: METOCLOPRAMIDE
     Dosage: 1 MILLIGRAM/KILOGRAM, CYCLE, 1 MG/KG, CYCLIC (ON DAY 1,2,3, REPEATED AFTER 28 DAYS)
  3. FUROSEMIDE [Concomitant]
     Active Substance: FUROSEMIDE
     Dosage: 20 MILLIGRAM, CYCLE, 20 MG, CYCLIC (ON DAY 1,2,3, REPEATED AFTER 28 DAYS)
     Route: 040
  4. KCL [Concomitant]
     Active Substance: POTASSIUM CHLORIDE
     Dosage: 5 MILLIEQUIVALENT, CYCLE, 5 MEQ, CYCLIC (ON DAY 1,2,3, REPEATED AFTER 28 DAYS)
  5. MAGNESIUM [Concomitant]
     Active Substance: MAGNESIUM
     Dosage: 3 MILLIEQUIVALENT, CYCLE, 3 MEQ, CYCLIC (ON DAY 1,2,3, REPEATED AFTER 28 DAYS)

REACTIONS (4)
  - Gastrointestinal toxicity [Unknown]
  - Neurotoxicity [Unknown]
  - Nausea [Unknown]
  - Vomiting [Unknown]
